FAERS Safety Report 8885393 (Version 2)
Quarter: 2012Q4

REPORT INFORMATION
  Report Type: 
  Country: BR (occurrence: BR)
  Receive Date: 20121101
  Receipt Date: 20121210
  Transmission Date: 20130627
  Serious: Yes (Death)
  Sender: FDA-Public Use
  Company Number: BR-ELI_LILLY_AND_COMPANY-BR201209002953

PATIENT
  Age: 62 Year
  Sex: Male

DRUGS (1)
  1. CIALIS [Suspect]
     Dosage: UNK UNK, unknown
     Route: 065

REACTIONS (3)
  - Acute myocardial infarction [Fatal]
  - Cerebrovascular accident [Fatal]
  - Drug ineffective [Unknown]
